FAERS Safety Report 12716867 (Version 1)
Quarter: 2016Q3

REPORT INFORMATION
  Report Type: Spontaneous
  Country: US (occurrence: US)
  Receive Date: 20160906
  Receipt Date: 20160906
  Transmission Date: 20161109
  Serious: No
  Sender: FDA-Public Use
  Company Number: US-ACTAVIS-2016-15222

PATIENT
  Sex: Female

DRUGS (1)
  1. GUAIFENESIN, PSEUDOEPHEDRINE (ACTAVIS LABORATORIES FL, INC.) [Suspect]
     Active Substance: GUAIFENESIN\PSEUDOEPHEDRINE HYDROCHLORIDE
     Indication: PRODUCT USED FOR UNKNOWN INDICATION
     Dosage: UNK, UNKNOWN
     Route: 048
     Dates: start: 201606

REACTIONS (1)
  - Headache [Unknown]

NARRATIVE: CASE EVENT DATE: 201606
